FAERS Safety Report 19953450 (Version 1)
Quarter: 2021Q4

REPORT INFORMATION
  Report Type: Spontaneous
  Country: US (occurrence: US)
  Receive Date: 20211014
  Receipt Date: 20211014
  Transmission Date: 20220303
  Serious: Yes (Life-Threatening, Hospitalization)
  Sender: FDA-Public Use
  Company Number: None

PATIENT
  Age: 81 Year
  Sex: Female
  Weight: 96.75 kg

DRUGS (2)
  1. TRULICITY [Suspect]
     Active Substance: DULAGLUTIDE
  2. TRESIBA [Suspect]
     Active Substance: INSULIN DEGLUDEC

REACTIONS (6)
  - Renal failure [None]
  - Dehydration [None]
  - Hypoglycaemia [None]
  - Hypotension [None]
  - Failure to thrive [None]
  - Anxiety [None]

NARRATIVE: CASE EVENT DATE: 20210702
